FAERS Safety Report 14107900 (Version 1)
Quarter: 2017Q4

REPORT INFORMATION
  Report Type: Spontaneous
  Country: GB (occurrence: GB)
  Receive Date: 20171019
  Receipt Date: 20171019
  Transmission Date: 20180321
  Serious: Yes (Other)
  Sender: FDA-Public Use
  Company Number: GB-GLAXOSMITHKLINE-GB2017160110

PATIENT
  Sex: Female

DRUGS (2)
  1. NICORETTE [Suspect]
     Active Substance: NICOTINE
     Indication: EX-TOBACCO USER
     Dosage: 4 MG, UNK
     Route: 048
     Dates: start: 2012
  2. NICORETTE [Suspect]
     Active Substance: NICOTINE
     Indication: EX-TOBACCO USER
     Dosage: 2 MG, UNK
     Route: 048
     Dates: start: 2012

REACTIONS (4)
  - Nicotine dependence [Not Recovered/Not Resolved]
  - Tooth loss [Unknown]
  - Tooth fracture [Unknown]
  - Intentional product use issue [Not Recovered/Not Resolved]
